FAERS Safety Report 9221903 (Version 3)
Quarter: 2013Q3

REPORT INFORMATION
  Report Type: Spontaneous
  Country: GB (occurrence: None)
  Receive Date: 20130408
  Receipt Date: 20130809
  Transmission Date: 20140515
  Serious: Yes (Hospitalization)
  Sender: FDA-Public Use
  Company Number: SYM-2013-02409

PATIENT
  Age: 64 Year
  Sex: Male

DRUGS (8)
  1. 5-FU [Suspect]
     Indication: COLORECTAL CANCER METASTATIC
     Route: 040
     Dates: start: 20120912, end: 20120912
  2. IRINOTECAN [Suspect]
     Indication: COLORECTAL CANCER METASTATIC
     Dosage: INTRAVENOUS ( NOT OTHERWISE SPECIFIED)?
     Route: 042
     Dates: start: 20120912, end: 20120912
  3. LEUCOVORIN (FOLINIC ACID) (SOLUTION FOR INFUSION) (FOLINIC ACID) [Suspect]
     Indication: COLORECTAL CANCER METASTATIC
     Dosage: INTRAVENOUS (NOT OTHERWISE SPECIFIED)?
     Route: 042
     Dates: start: 20120912, end: 20120912
  4. AFLIBERCEPT [Suspect]
     Indication: COLORECTAL CANCER METASTATIC
     Dosage: INTRAVENOUS (NOT OTHERWISE SPECIFIED)?
     Route: 042
     Dates: start: 20120912, end: 20120912
  5. CO-DANTHRUSATE (COLOXYL WITH DANTHRON (DANTRON, DOCUSATE SODIUM) [Concomitant]
  6. CHLORHEXIDINE (CHLORHEXIDINE) (CHLORHEXIDINE) [Concomitant]
  7. ANTIBIOTICS (ANTIBIOTICS) [Concomitant]
  8. CALCIUM CHANNEL BLOCKERS (CALCIUM CHANNEL BLOCKERS) [Concomitant]

REACTIONS (3)
  - Anal fissure [None]
  - Pulmonary embolism [None]
  - Tuberculosis [None]
